FAERS Safety Report 18630081 (Version 1)
Quarter: 2020Q4

REPORT INFORMATION
  Report Type: Spontaneous
  Country: FR (occurrence: FR)
  Receive Date: 20201217
  Receipt Date: 20201217
  Transmission Date: 20210114
  Serious: Yes (Hospitalization)
  Sender: FDA-Public Use
  Company Number: FR-MYLANLABS-2020M1101945

PATIENT
  Age: 69 Year
  Sex: Female
  Weight: 91 kg

DRUGS (11)
  1. KARDEGIC [Concomitant]
     Active Substance: ASPIRIN DL-LYSINE
     Dosage: UNK
  2. DIAMICRON [Concomitant]
     Active Substance: GLICLAZIDE
     Dosage: UNK
  3. PANTOPRAZOLE [Suspect]
     Active Substance: PANTOPRAZOLE
     Indication: GASTROOESOPHAGEAL REFLUX DISEASE
     Dosage: 80 MILLIGRAM, QD
     Dates: start: 20201102
  4. PREDNISOLONE ARROW [Suspect]
     Active Substance: PREDNISOLONE
     Indication: SCIATICA
     Dosage: UNK
     Route: 048
     Dates: start: 20201102, end: 20201108
  5. LEVOTHYROX [Concomitant]
     Active Substance: LEVOTHYROXINE
     Dosage: UNK
  6. TOPALGIC LP [Concomitant]
     Active Substance: TRAMADOL HYDROCHLORIDE
     Dosage: UNK
  7. GAVISCON                           /01279101/ [Concomitant]
     Active Substance: ALUMINUM HYDROXIDE \CALCIUM CARBONATE\SODIUM ALGINATE\SODIUM BICARBONATE
     Dosage: UNK
  8. DOLIPRANE [Concomitant]
     Active Substance: ACETAMINOPHEN
     Dosage: UNK
  9. METFORMINE                         /00082701/ [Concomitant]
     Active Substance: METFORMIN HYDROCHLORIDE
     Dosage: UNK
  10. COVERSYL                           /00790702/ [Concomitant]
     Active Substance: PERINDOPRIL
     Dosage: UNK
  11. LIPANTHYL [Concomitant]
     Active Substance: FENOFIBRATE
     Dosage: UNK

REACTIONS (2)
  - Pancreatitis acute [Not Recovered/Not Resolved]
  - Abdominal pain upper [Not Recovered/Not Resolved]

NARRATIVE: CASE EVENT DATE: 20201102
